FAERS Safety Report 12275759 (Version 11)
Quarter: 2022Q1

REPORT INFORMATION
  Report Type: Spontaneous
  Country: DE (occurrence: DE)
  Receive Date: 20160418
  Receipt Date: 20220215
  Transmission Date: 20220423
  Serious: Yes (Hospitalization, Other)
  Sender: FDA-Public Use
  Company Number: DE-ROCHE-1727000

PATIENT
  Age: 66 Year
  Sex: Male

DRUGS (14)
  1. CELLCEPT [Suspect]
     Active Substance: MYCOPHENOLATE MOFETIL
     Indication: Pemphigus
     Route: 048
     Dates: start: 20151017
  2. CELLCEPT [Suspect]
     Active Substance: MYCOPHENOLATE MOFETIL
     Route: 048
     Dates: start: 201511
  3. CELLCEPT [Suspect]
     Active Substance: MYCOPHENOLATE MOFETIL
     Route: 048
     Dates: start: 201804
  4. CELLCEPT [Suspect]
     Active Substance: MYCOPHENOLATE MOFETIL
     Route: 048
  5. CELLCEPT [Suspect]
     Active Substance: MYCOPHENOLATE MOFETIL
     Route: 048
  6. CELLCEPT [Suspect]
     Active Substance: MYCOPHENOLATE MOFETIL
     Route: 048
     Dates: start: 20151017
  7. CELLCEPT [Suspect]
     Active Substance: MYCOPHENOLATE MOFETIL
     Route: 048
  8. PRADAXA [Suspect]
     Active Substance: DABIGATRAN ETEXILATE MESYLATE
     Indication: Product used for unknown indication
     Route: 065
     Dates: start: 20160304
  9. PREDNISOLONE [Concomitant]
     Active Substance: PREDNISOLONE
     Indication: Pemphigus
     Dates: start: 20151017
  10. PREDNISOLONE [Concomitant]
     Active Substance: PREDNISOLONE
     Dates: start: 20160727
  11. PANTOPRAZOLE SODIUM [Concomitant]
     Active Substance: PANTOPRAZOLE SODIUM
     Dates: start: 20151017
  12. CALCIUM CARBONATE\CHOLECALCIFEROL [Concomitant]
     Active Substance: CALCIUM CARBONATE\CHOLECALCIFEROL
     Dosage: DOSE: 500 MG/400 IU
     Route: 065
     Dates: start: 20151017
  13. COVID-19 VACCINE [Concomitant]
     Indication: COVID-19 prophylaxis
     Dosage: VACCINATION
  14. COVID-19 VACCINE [Concomitant]
     Dosage: BOOSTER VACCINATION

REACTIONS (29)
  - Skin papilloma [Unknown]
  - Contraindicated product administered [Unknown]
  - Bone pain [Not Recovered/Not Resolved]
  - Micturition urgency [Not Recovered/Not Resolved]
  - Visual impairment [Not Recovered/Not Resolved]
  - Haemorrhoidal haemorrhage [Recovered/Resolved]
  - Tremor [Not Recovered/Not Resolved]
  - Mitral valve incompetence [Not Recovered/Not Resolved]
  - Off label use [Unknown]
  - Alanine aminotransferase increased [Unknown]
  - Urinary tract infection [Unknown]
  - Myalgia [Not Recovered/Not Resolved]
  - Nocturnal dyspnoea [Recovered/Resolved]
  - Activated partial thromboplastin time shortened [Not Recovered/Not Resolved]
  - Atrial fibrillation [Recovered/Resolved]
  - Cystitis [Unknown]
  - Acquired hydrocele [Not Recovered/Not Resolved]
  - Thrombosis [Unknown]
  - Hypertension [Unknown]
  - Pulmonary embolism [Unknown]
  - Cataract [Not Recovered/Not Resolved]
  - Nasopharyngitis [Unknown]
  - Mitral valve repair [Unknown]
  - Blood urine present [Not Recovered/Not Resolved]
  - Hepatic steatosis [Unknown]
  - Mitral valve disease [Not Recovered/Not Resolved]
  - Intentional product use issue [Unknown]
  - Faeces discoloured [Not Recovered/Not Resolved]
  - T-lymphocyte count decreased [Not Recovered/Not Resolved]

NARRATIVE: CASE EVENT DATE: 20160304
